FAERS Safety Report 9516105 (Version 1)
Quarter: 2013Q3

REPORT INFORMATION
  Report Type: Spontaneous
  Country: ES (occurrence: None)
  Receive Date: 20130909
  Receipt Date: 20130909
  Transmission Date: 20140515
  Serious: Yes (Hospitalization)
  Sender: FDA-Public Use
  Company Number: IPC201308-000344

PATIENT
  Age: 71 Year
  Sex: Female

DRUGS (5)
  1. HYDROCHLOROTHIAZIDE [Suspect]
     Indication: HYPERTENSION
     Dosage: 12.5 MG/DAY THERAOY STOPPED
  2. LISINOPRIL [Suspect]
     Dosage: 20 MG/DAY THERAPY - STOPPED
  3. CALCIUM CARBONATE (CALCIUM CARBONATE) (CALCIUM CARBONATE) [Suspect]
     Dosage: 900 MG/DAY  THERAPY - ONGOING
  4. CALCITRIOL (CALCITRIOL) (CALCITRIOL) [Suspect]
     Dosage: 1  MICROG/ DAY  THERAPY-ONGOING
  5. LEVOTHYROXINE [Suspect]

REACTIONS (3)
  - Hypothyroidism [None]
  - Hypoparathyroidism [None]
  - Milk-alkali syndrome [None]
